FAERS Safety Report 4585457-8 (Version None)
Quarter: 2005Q1

REPORT INFORMATION
  Report Type: 
  Country: None (occurrence: None)
  Receive Date: 20050217
  Receipt Date: 20041220
  Transmission Date: 20050727
  Serious: Yes (Hospitalization)
  Sender: FDA-Public Use
  Company Number: DE-AMGEN-UK104330

PATIENT
  Sex: Female

DRUGS (13)
  1. KINERET [Suspect]
     Indication: RHEUMATOID ARTHRITIS
     Route: 058
     Dates: start: 20030320
  2. METHOTREXATE [Suspect]
     Route: 065
     Dates: start: 19970201, end: 20040723
  3. DECORTIN-H [Concomitant]
     Route: 065
     Dates: start: 19970201
  4. TRAMAL [Concomitant]
     Route: 065
     Dates: start: 20030301
  5. PLAVIX [Concomitant]
     Route: 065
     Dates: start: 20040301
  6. CALCIPOTRIOL [Concomitant]
     Route: 061
  7. CLOTRIMAZOLE [Concomitant]
     Route: 061
  8. FENTANYL [Concomitant]
     Route: 061
     Dates: start: 20040625
  9. DIPYRONE [Concomitant]
  10. ACETAMINOPHEN [Concomitant]
     Route: 048
  11. MOVICOL [Concomitant]
  12. ARAVA [Concomitant]
  13. SEVREDOL [Concomitant]

REACTIONS (6)
  - MYCOSIS FUNGOIDES [None]
  - PNEUMONITIS [None]
  - PSORIASIS [None]
  - SKIN ULCER [None]
  - STAPHYLOCOCCAL INFECTION [None]
  - TRANSIENT ISCHAEMIC ATTACK [None]
